FAERS Safety Report 19418684 (Version 1)
Quarter: 2021Q2

REPORT INFORMATION
  Report Type: Spontaneous
  Country: US (occurrence: US)
  Receive Date: 20210615
  Receipt Date: 20210615
  Transmission Date: 20210717
  Serious: Yes (Hospitalization)
  Sender: FDA-Public Use
  Company Number: US-PURDUE PHARMA-USA-2021-0269807

PATIENT
  Age: 73 Year
  Sex: Male

DRUGS (1)
  1. SENOKOT [Suspect]
     Active Substance: SENNOSIDES
     Indication: CONSTIPATION
     Route: 048

REACTIONS (3)
  - Diarrhoea [Unknown]
  - Transfusion [Unknown]
  - Dehydration [Unknown]

NARRATIVE: CASE EVENT DATE: 202103
